FAERS Safety Report 17427386 (Version 3)
Quarter: 2020Q2

REPORT INFORMATION
  Report Type: Spontaneous
  Country: IT (occurrence: IT)
  Receive Date: 20200218
  Receipt Date: 20200619
  Transmission Date: 20200713
  Serious: Yes (Life-Threatening)
  Sender: FDA-Public Use
  Company Number: IT-ACCORD-172916

PATIENT
  Age: 20 Year
  Sex: Female

DRUGS (5)
  1. QUETIAPINE. [Suspect]
     Active Substance: QUETIAPINE
     Indication: PRODUCT USED FOR UNKNOWN INDICATION
     Dates: start: 20200128, end: 20200128
  2. SERTRALINE [Suspect]
     Active Substance: SERTRALINE HYDROCHLORIDE
     Dosage: 10 DF, UNK
     Route: 048
     Dates: start: 20200128, end: 20200128
  3. RIVOTRIL [Concomitant]
     Active Substance: CLONAZEPAM
     Dosage: STRENGTH: 0.5 MG TABLETS,1 DF, UNK
     Route: 048
  4. ESCITALOPRAM [Concomitant]
     Active Substance: ESCITALOPRAM OXALATE
     Dosage: 1 DF, UNK
     Route: 048
  5. ALPRAZOLAM. [Suspect]
     Active Substance: ALPRAZOLAM
     Dosage: 2.5 MG, UNK
     Route: 048
     Dates: start: 20200128, end: 20200128

REACTIONS (6)
  - Drug abuse [Unknown]
  - Sopor [Recovered/Resolved]
  - Tachycardia [Recovered/Resolved]
  - Intentional self-injury [Unknown]
  - Coma [Recovered/Resolved]
  - Mydriasis [Recovered/Resolved]

NARRATIVE: CASE EVENT DATE: 20200129
